FAERS Safety Report 25218484 (Version 1)
Quarter: 2025Q2

REPORT INFORMATION
  Report Type: Spontaneous
  Country: CN (occurrence: CN)
  Receive Date: 20250421
  Receipt Date: 20250421
  Transmission Date: 20250716
  Serious: Yes (Other)
  Sender: RANBAXY
  Company Number: CN-SUN PHARMACEUTICAL INDUSTRIES LTD-2025R1-503983

PATIENT
  Age: 31 Year
  Sex: Male

DRUGS (14)
  1. DEXAMETHASONE\TOBRAMYCIN [Suspect]
     Active Substance: DEXAMETHASONE\TOBRAMYCIN
     Indication: Corneal epithelium defect
     Dosage: UNK, QID
  2. DEXAMETHASONE\TOBRAMYCIN [Suspect]
     Active Substance: DEXAMETHASONE\TOBRAMYCIN
     Indication: Postoperative care
  3. BROMFENAC [Suspect]
     Active Substance: BROMFENAC
     Indication: Corneal epithelium defect
     Dosage: UNK, BID
  4. BROMFENAC [Suspect]
     Active Substance: BROMFENAC
     Indication: Postoperative care
  5. PREDNISOLONE [Suspect]
     Active Substance: PREDNISOLONE
     Indication: Corneal epithelium defect
     Dosage: UNK UNK, QID
  6. PREDNISOLONE [Suspect]
     Active Substance: PREDNISOLONE
     Indication: Postoperative care
  7. LOTEPREDNOL [Suspect]
     Active Substance: LOTEPREDNOL
     Indication: Corneal epithelium defect
     Dosage: UNK, TID
  8. LOTEPREDNOL [Suspect]
     Active Substance: LOTEPREDNOL
     Indication: Postoperative care
  9. SODIUM HYALURONATE [Suspect]
     Active Substance: HYALURONATE SODIUM
     Indication: Corneal epithelium defect
  10. SODIUM HYALURONATE [Suspect]
     Active Substance: HYALURONATE SODIUM
     Indication: Postoperative care
  11. FLUOROMETHOLONE [Suspect]
     Active Substance: FLUOROMETHOLONE
     Indication: Corneal epithelium defect
     Dosage: UNK, TID
  12. FLUOROMETHOLONE [Suspect]
     Active Substance: FLUOROMETHOLONE
     Indication: Postoperative care
  13. CARBOMER [Suspect]
     Active Substance: CARBOMER
     Indication: Corneal epithelium defect
     Dosage: UNK
  14. CARBOMER [Suspect]
     Active Substance: CARBOMER
     Indication: Postoperative care

REACTIONS (2)
  - Viral infection [Unknown]
  - Impaired healing [Recovering/Resolving]
